FAERS Safety Report 22110932 (Version 1)
Quarter: 2023Q1

REPORT INFORMATION
  Report Type: Spontaneous
  Country: US (occurrence: US)
  Receive Date: 20230317
  Receipt Date: 20230317
  Transmission Date: 20230418
  Serious: No
  Sender: FDA-Public Use
  Company Number: US-PFIZER INC-202300062535

PATIENT
  Age: 75 Year
  Sex: Female
  Weight: 89.342 kg

DRUGS (2)
  1. IBRANCE [Suspect]
     Active Substance: PALBOCICLIB
     Indication: Breast cancer
     Dosage: 100 MG, 3 WEEKS ON, 1 WEEK OFF
     Dates: end: 2019
  2. IBRANCE [Suspect]
     Active Substance: PALBOCICLIB
     Dosage: 100 MG 1X/DAY, 14 DAYS ON, 1 WEEK OFF
     Dates: start: 2019

REACTIONS (2)
  - Full blood count decreased [Unknown]
  - Off label use [Unknown]
